FAERS Safety Report 5746542-8 (Version None)
Quarter: 2008Q2

REPORT INFORMATION
  Report Type: 
  Country: None (occurrence: None)
  Receive Date: 20080522
  Receipt Date: 20080313
  Transmission Date: 20081010
  Serious: No
  Sender: FDA-Public Use
  Company Number: US-BRISTOL-MYERS SQUIBB COMPANY-14025209

PATIENT
  Age: 37 Year
  Sex: Female
  Weight: 57 kg

DRUGS (8)
  1. CYTOXAN [Suspect]
     Indication: BREAST CANCER
     Dates: start: 20070101, end: 20070101
  2. DOCETAXEL [Suspect]
     Indication: BREAST CANCER
     Dates: start: 20071022
  3. DECADRON [Concomitant]
     Dosage: 21-OCT-2007 TO 22-OCT-2007. RESTARTED 22-OCT-2007.
     Dates: start: 20071021
  4. ALOXI [Concomitant]
     Route: 042
     Dates: start: 20071022
  5. ZANTAC [Concomitant]
     Dates: start: 20071022
  6. BENADRYL [Concomitant]
     Route: 042
     Dates: start: 20071022, end: 20071022
  7. ATIVAN [Concomitant]
     Route: 042
     Dates: start: 20071022
  8. EMEND [Concomitant]
     Route: 048
     Dates: start: 20071022

REACTIONS (1)
  - HYPERSENSITIVITY [None]
